FAERS Safety Report 10136770 (Version 2)
Quarter: 2014Q2

REPORT INFORMATION
  Report Type: Spontaneous
  Country: US (occurrence: US)
  Receive Date: 20140429
  Receipt Date: 20140429
  Transmission Date: 20141212
  Serious: No
  Sender: FDA-Public Use
  Company Number: US-MYLANLABS-2013S1009242

PATIENT
  Age: 84 Year
  Sex: Female

DRUGS (1)
  1. IPRATROPIUM BROMIDE AND ALBUTEROL SULFATE INHALATION SOLUTION [Suspect]
     Dosage: Q4H AROUND THE CLOCK
     Route: 055

REACTIONS (1)
  - Urinary tract infection [Not Recovered/Not Resolved]
